FAERS Safety Report 7369762-8 (Version None)
Quarter: 2011Q1

REPORT INFORMATION
  Report Type: 
  Country: None (occurrence: None)
  Receive Date: 20110323
  Receipt Date: 20110315
  Transmission Date: 20110831
  Serious: Yes (Hospitalization)
  Sender: FDA-Public Use
  Company Number: FR-ASTRAZENECA-2011SE14949

PATIENT
  Age: 54 Year
  Sex: Female

DRUGS (2)
  1. CRESTOR [Suspect]
     Route: 048
     Dates: start: 20110201
  2. PREVISCAN [Suspect]
     Indication: DEEP VEIN THROMBOSIS
     Route: 048
     Dates: start: 20100501, end: 20110213

REACTIONS (1)
  - MUSCLE HAEMORRHAGE [None]
